FAERS Safety Report 14633668 (Version 1)
Quarter: 2018Q1

REPORT INFORMATION
  Report Type: Spontaneous
  Country: AU (occurrence: AU)
  Receive Date: 20180314
  Receipt Date: 20180314
  Transmission Date: 20180509
  Serious: Yes (Death, Other)
  Sender: FDA-Public Use
  Company Number: AU-TORRENT-00000259

PATIENT
  Age: 18 Year
  Sex: Female

DRUGS (1)
  1. MONTELUKAST [Suspect]
     Active Substance: MONTELUKAST SODIUM
     Indication: ASTHMA

REACTIONS (3)
  - Completed suicide [Fatal]
  - Decreased interest [Unknown]
  - Depression [Unknown]

NARRATIVE: CASE EVENT DATE: 201705
